FAERS Safety Report 11455536 (Version 1)
Quarter: 2015Q3

REPORT INFORMATION
  Report Type: Spontaneous
  Country: FR (occurrence: FR)
  Receive Date: 20150903
  Receipt Date: 20150903
  Transmission Date: 20151125
  Serious: Yes (Other)
  Sender: FDA-Public Use
  Company Number: FR-TEVA-590145ISR

PATIENT
  Age: 17 Year
  Sex: Female

DRUGS (2)
  1. GARDASIL [Suspect]
     Active Substance: HUMAN PAPILLOMAVIRUS QUADRIVALENT (TYPES 6, 11, 16, AND 18) VACCINE, RECOMBINANT
     Indication: HUMAN PAPILLOMA VIRUS IMMUNISATION
     Dosage: VACCINE
     Route: 030
     Dates: start: 2013, end: 2013
  2. LEELOO [Suspect]
     Active Substance: ETHINYL ESTRADIOL\LEVONORGESTREL
     Dosage: 1 DOSAGE FORMS DAILY;
     Route: 048
     Dates: start: 201401

REACTIONS (2)
  - Paraesthesia [Recovering/Resolving]
  - Peripheral swelling [Recovering/Resolving]

NARRATIVE: CASE EVENT DATE: 201401
